FAERS Safety Report 7630289-7 (Version None)
Quarter: 2011Q3

REPORT INFORMATION
  Report Type: 
  Country: None (occurrence: None)
  Receive Date: 20110722
  Receipt Date: 20110715
  Transmission Date: 20111222
  Serious: Yes (Hospitalization)
  Sender: FDA-Public Use
  Company Number: PHHY2011TR64920

PATIENT
  Sex: Male
  Weight: 29 kg

DRUGS (4)
  1. TOPIRAMATE [Suspect]
     Dosage: 3 MG/KG, QD
     Route: 048
  2. TOPIRAMATE [Suspect]
     Dosage: 10 TABLETS OF 25 MG, BID
     Route: 048
  3. TOPIRAMATE [Suspect]
     Indication: CONVULSION
     Dosage: 1 MG/KG, QD
     Route: 048
  4. TOPIRAMATE [Suspect]
     Dosage: 10 TABLETS OF 50 MG, BID
     Route: 048

REACTIONS (11)
  - ABASIA [None]
  - MUSCULOSKELETAL STIFFNESS [None]
  - NAUSEA [None]
  - VOMITING [None]
  - OVERDOSE [None]
  - HYPERREFLEXIA [None]
  - ATAXIA [None]
  - SOMNOLENCE [None]
  - LETHARGY [None]
  - TOXICITY TO VARIOUS AGENTS [None]
  - MENINGISM [None]
